FAERS Safety Report 7452024-8 (Version None)
Quarter: 2011Q2

REPORT INFORMATION
  Report Type: 
  Country: None (occurrence: None)
  Receive Date: 20110425
  Receipt Date: 20110415
  Transmission Date: 20111010
  Serious: Yes (Other)
  Sender: FDA-Public Use
  Company Number: 2011MA004338

PATIENT
  Age: 33 Year
  Sex: Male

DRUGS (10)
  1. MIRTAZAPINE [Suspect]
     Indication: DEPRESSION
     Dosage: 15 MG;HS
     Dates: start: 20110301
  2. MIRTAZAPINE [Suspect]
     Indication: OBSESSIVE-COMPULSIVE DISORDER
     Dosage: 15 MG;HS
     Dates: start: 20110301
  3. MIRTAZAPINE [Suspect]
     Indication: ANXIETY
     Dosage: 15 MG;HS
     Dates: start: 20110301
  4. MIRTAZAPINE [Concomitant]
  5. MIRTAZAPINE [Suspect]
     Indication: DEPRESSION
     Dosage: 15 MG;HS
     Dates: start: 20110301
  6. MIRTAZAPINE [Suspect]
     Indication: ANXIETY
     Dosage: 15 MG;HS
     Dates: start: 20110301
  7. MIRTAZAPINE [Suspect]
     Indication: OBSESSIVE-COMPULSIVE DISORDER
     Dosage: 15 MG;HS
     Dates: start: 20110301
  8. MIRTAZAPINE [Suspect]
     Indication: ANXIETY
     Dosage: 15 MG;HS
     Dates: start: 20110301
  9. MIRTAZAPINE [Suspect]
     Indication: OBSESSIVE-COMPULSIVE DISORDER
     Dosage: 15 MG;HS
     Dates: start: 20110301
  10. MIRTAZAPINE [Suspect]
     Indication: DEPRESSION
     Dosage: 15 MG;HS
     Dates: start: 20110301

REACTIONS (3)
  - HYPERVIGILANCE [None]
  - DECREASED ACTIVITY [None]
  - PRODUCT SUBSTITUTION ISSUE [None]
